FAERS Safety Report 4989213-8 (Version None)
Quarter: 2006Q1

REPORT INFORMATION
  Report Type: 
  Country: None (occurrence: None)
  Receive Date: 20060314
  Receipt Date: 20060209
  Transmission Date: 20060701
  Serious: Yes (Hospitalization, Other)
  Sender: FDA-Public Use
  Company Number: 2006-00302

PATIENT
  Age: 64 Year
  Sex: Male
  Weight: 122.4 kg

DRUGS (1)
  1. VELCADE [Suspect]
     Dates: start: 20050125, end: 20050125

REACTIONS (1)
  - ARRHYTHMIA [None]
